FAERS Safety Report 20988914 (Version 1)
Quarter: 2022Q2

REPORT INFORMATION
  Report Type: Spontaneous
  Country: US (occurrence: US)
  Receive Date: 20220621
  Receipt Date: 20220621
  Transmission Date: 20220721
  Serious: Yes (Death, Other)
  Sender: FDA-Public Use
  Company Number: US-MALLINCKRODT-T202203111

PATIENT
  Age: 18 Year

DRUGS (1)
  1. INOMAX [Suspect]
     Active Substance: NITRIC OXIDE
     Indication: Cardio-respiratory arrest
     Dosage: 40 PPM (INHALATION)
     Route: 055
     Dates: start: 20220614, end: 20220614

REACTIONS (4)
  - Death [Fatal]
  - Pulmonary haemorrhage [Unknown]
  - Product use in unapproved indication [Unknown]
  - Product use issue [Unknown]

NARRATIVE: CASE EVENT DATE: 20220614
